FAERS Safety Report 9173465 (Version 1)
Quarter: 2013Q1

REPORT INFORMATION
  Report Type: Spontaneous
  Country: US (occurrence: US)
  Receive Date: 20130320
  Receipt Date: 20130320
  Transmission Date: 20140127
  Serious: Yes (Other)
  Sender: FDA-Public Use
  Company Number: US-MYLANLABS-2013S1003855

PATIENT
  Age: 70 Year
  Sex: Male
  Weight: 97.07 kg

DRUGS (6)
  1. ATORVASTATIN CALCIUM TABLETS [Suspect]
     Indication: BLOOD CHOLESTEROL INCREASED
     Route: 048
  2. ZETIA [Concomitant]
     Indication: BLOOD CHOLESTEROL INCREASED
  3. TAMSULOSIN [Concomitant]
     Indication: DYSURIA
  4. ASA [Concomitant]
  5. CO Q10 [Concomitant]
  6. COLACE [Concomitant]
     Indication: CONSTIPATION

REACTIONS (1)
  - Hypersensitivity [Recovering/Resolving]
